FAERS Safety Report 19433132 (Version 1)
Quarter: 2021Q2

REPORT INFORMATION
  Report Type: Spontaneous
  Country: US (occurrence: US)
  Receive Date: 20210617
  Receipt Date: 20210617
  Transmission Date: 20210717
  Serious: Yes (Hospitalization)
  Sender: FDA-Public Use
  Company Number: US-TEVA-2021-US-1922470

PATIENT
  Age: 17 Year
  Sex: Female

DRUGS (1)
  1. IBUPROFEN. [Suspect]
     Active Substance: IBUPROFEN
     Indication: SUICIDE ATTEMPT
     Dosage: 2000MG/KG
     Route: 048

REACTIONS (12)
  - Acute kidney injury [Recovered/Resolved]
  - Electrolyte imbalance [Unknown]
  - Multiple organ dysfunction syndrome [Unknown]
  - Lethargy [Unknown]
  - Seizure like phenomena [Unknown]
  - Metabolic acidosis [Unknown]
  - Depressed level of consciousness [Recovering/Resolving]
  - Intentional overdose [Unknown]
  - Suicide attempt [Unknown]
  - Hypotension [Recovered/Resolved]
  - Shock [Unknown]
  - Toxicity to various agents [Unknown]
